FAERS Safety Report 24792822 (Version 2)
Quarter: 2025Q4

REPORT INFORMATION
  Report Type: Report from Study
  Country: CA (occurrence: CA)
  Receive Date: 20241231
  Receipt Date: 20251209
  Transmission Date: 20260117
  Serious: Yes (Hospitalization, Other)
  Sender: APOTEX
  Company Number: CA-APOTEX-2024AP020040

PATIENT
  Age: 66 Year
  Sex: Female
  Weight: 69 kg

DRUGS (4)
  1. MOXIFLOXACIN [Suspect]
     Active Substance: MOXIFLOXACIN
     Indication: Sinusitis
     Dosage: UNK
     Route: 065
  2. OMALIZUMAB [Suspect]
     Active Substance: OMALIZUMAB
     Indication: Asthma
     Dosage: UNK
  3. OMALIZUMAB [Suspect]
     Active Substance: OMALIZUMAB
     Dosage: 300 MILLIGRAM
  4. OMALIZUMAB [Suspect]
     Active Substance: OMALIZUMAB
     Dosage: 150 MILLIGRAM, 1 EVERY 4 WEEKS

REACTIONS (44)
  - Bronchitis [Not Recovered/Not Resolved]
  - Cardiac disorder [Not Recovered/Not Resolved]
  - Cardiomegaly [Not Recovered/Not Resolved]
  - Chronic obstructive pulmonary disease [Not Recovered/Not Resolved]
  - Contusion [Not Recovered/Not Resolved]
  - Disease progression [Not Recovered/Not Resolved]
  - Fall [Not Recovered/Not Resolved]
  - Fluid retention [Not Recovered/Not Resolved]
  - Forced expiratory volume decreased [Not Recovered/Not Resolved]
  - Heart rate decreased [Not Recovered/Not Resolved]
  - Heart rate irregular [Not Recovered/Not Resolved]
  - Hiatus hernia [Not Recovered/Not Resolved]
  - Inappropriate schedule of product administration [Not Recovered/Not Resolved]
  - Incorrect dose administered [Not Recovered/Not Resolved]
  - Increased bronchial secretion [Not Recovered/Not Resolved]
  - Joint dislocation [Not Recovered/Not Resolved]
  - Lower respiratory tract infection [Not Recovered/Not Resolved]
  - Middle insomnia [Not Recovered/Not Resolved]
  - Nasal dryness [Not Recovered/Not Resolved]
  - Panic attack [Not Recovered/Not Resolved]
  - Poor quality sleep [Not Recovered/Not Resolved]
  - Sleep apnoea syndrome [Not Recovered/Not Resolved]
  - Symptom recurrence [Not Recovered/Not Resolved]
  - Upper limb fracture [Not Recovered/Not Resolved]
  - Vascular occlusion [Not Recovered/Not Resolved]
  - Weight decreased [Not Recovered/Not Resolved]
  - Wheezing [Not Recovered/Not Resolved]
  - Productive cough [Not Recovered/Not Resolved]
  - Bone contusion [Not Recovered/Not Resolved]
  - Asthma [Not Recovered/Not Resolved]
  - Arthralgia [Not Recovered/Not Resolved]
  - Cough [Not Recovered/Not Resolved]
  - Urinary tract infection [Not Recovered/Not Resolved]
  - Pneumonia [Not Recovered/Not Resolved]
  - Diplopia [Not Recovered/Not Resolved]
  - Sinusitis [Not Recovered/Not Resolved]
  - Epistaxis [Not Recovered/Not Resolved]
  - Pain [Not Recovered/Not Resolved]
  - Arthritis [Not Recovered/Not Resolved]
  - Lung disorder [Not Recovered/Not Resolved]
  - Hypertension [Not Recovered/Not Resolved]
  - Dyspnoea [Not Recovered/Not Resolved]
  - Hypersensitivity [Not Recovered/Not Resolved]
  - Obstructive airways disorder [Not Recovered/Not Resolved]
